FAERS Safety Report 4759143-5 (Version None)
Quarter: 2005Q3

REPORT INFORMATION
  Report Type: 
  Country: None (occurrence: None)
  Receive Date: 20050831
  Receipt Date: 20050816
  Transmission Date: 20060218
  Serious: Yes (Death)
  Sender: FDA-Public Use
  Company Number: S05-UKI-03087-01

PATIENT
  Age: 54 Year
  Sex: Female

DRUGS (1)
  1. CIPRALEX (ESCITALOPRAM) [Suspect]
     Indication: DEPRESSION
     Dosage: 5 MG QD PO
     Route: 048
     Dates: start: 20050226

REACTIONS (3)
  - COMPLETED SUICIDE [None]
  - HEAD INJURY [None]
  - POLYTRAUMATISM [None]
